FAERS Safety Report 6811186-3 (Version None)
Quarter: 2010Q2

REPORT INFORMATION
  Report Type: 
  Country: None (occurrence: None)
  Receive Date: 20100629
  Receipt Date: 20100629
  Transmission Date: 20101027
  Serious: Yes (Death, Hospitalization)
  Sender: FDA-Public Use
  Company Number: None

PATIENT
  Age: 64 Year
  Sex: Male
  Weight: 117.4816 kg

DRUGS (6)
  1. BENDAMUSTINE [Suspect]
     Indication: SMALL CELL LUNG CANCER STAGE UNSPECIFIED
     Dosage: 280 MG DAY 1 + DAY 2 OF A 21 DAY CYCLE
     Dates: start: 20100425
  2. BENDAMUSTINE [Suspect]
     Indication: SMALL CELL LUNG CANCER STAGE UNSPECIFIED
     Dosage: 280 MG DAY 1 + DAY 2 OF A 21 DAY CYCLE
     Dates: start: 20100427
  3. BENDAMUSTINE [Suspect]
     Indication: SMALL CELL LUNG CANCER STAGE UNSPECIFIED
     Dosage: 280 MG DAY 1 + DAY 2 OF A 21 DAY CYCLE
     Dates: start: 20100517
  4. BENDAMUSTINE [Suspect]
     Indication: SMALL CELL LUNG CANCER STAGE UNSPECIFIED
     Dosage: 280 MG DAY 1 + DAY 2 OF A 21 DAY CYCLE
     Dates: start: 20100518
  5. BENDAMUSTINE [Suspect]
     Indication: SMALL CELL LUNG CANCER STAGE UNSPECIFIED
     Dosage: 280 MG DAY 1 + DAY 2 OF A 21 DAY CYCLE
     Dates: start: 20100621
  6. BENDAMUSTINE [Suspect]
     Indication: SMALL CELL LUNG CANCER STAGE UNSPECIFIED
     Dosage: 280 MG DAY 1 + DAY 2 OF A 21 DAY CYCLE
     Dates: start: 20100622

REACTIONS (6)
  - ACUTE RESPIRATORY DISTRESS SYNDROME [None]
  - ATRIAL FIBRILLATION [None]
  - COLLAPSE OF LUNG [None]
  - FALL [None]
  - GENERAL PHYSICAL HEALTH DETERIORATION [None]
  - LOBAR PNEUMONIA [None]
